FAERS Safety Report 5956416-5 (Version None)
Quarter: 2008Q4

REPORT INFORMATION
  Report Type: 
  Country: None (occurrence: None)
  Receive Date: 20081114
  Receipt Date: 20081114
  Transmission Date: 20090506
  Serious: Yes (Life-Threatening, Hospitalization)
  Sender: FDA-Public Use
  Company Number: None

PATIENT
  Age: 20 Year
  Sex: Female
  Weight: 40.8237 kg

DRUGS (2)
  1. STELAZINE [Suspect]
     Indication: AFFECTIVE DISORDER
     Dosage: 5MG T.I.D. ORAL
     Route: 048
     Dates: start: 19700812, end: 19701106
  2. TOFRANIL [Suspect]
     Indication: AFFECTIVE DISORDER
     Dosage: 50MG T.I.D. ORAL
     Route: 048
     Dates: start: 19700812, end: 19701106

REACTIONS (4)
  - COMA [None]
  - NEUROLEPTIC MALIGNANT SYNDROME [None]
  - OVERDOSE [None]
  - URINE OUTPUT DECREASED [None]
